FAERS Safety Report 21908616 (Version 1)
Quarter: 2023Q1

REPORT INFORMATION
  Report Type: Spontaneous
  Country: US (occurrence: None)
  Receive Date: 20230124
  Receipt Date: 20230124
  Transmission Date: 20230417
  Serious: No
  Sender: FDA-Public Use
  Company Number: None

PATIENT
  Age: 35 Year
  Sex: Female
  Weight: 103.05 kg

DRUGS (1)
  1. VENOFER [Suspect]
     Active Substance: IRON SUCROSE
     Indication: Iron deficiency
     Dosage: FREQUENCY : TWICE A DAY;?
     Route: 042
     Dates: start: 20230113, end: 20230113

REACTIONS (13)
  - Injection site pain [None]
  - Injection site pain [None]
  - Hypoaesthesia [None]
  - Dizziness [None]
  - Peripheral swelling [None]
  - Peripheral swelling [None]
  - Swelling face [None]
  - Headache [None]
  - Peripheral swelling [None]
  - Arthralgia [None]
  - Abdominal distension [None]
  - Eyelid sensory disorder [None]
  - Dyspnoea [None]

NARRATIVE: CASE EVENT DATE: 20230116
